FAERS Safety Report 5735953-2 (Version None)
Quarter: 2008Q2

REPORT INFORMATION
  Report Type: 
  Country: None (occurrence: None)
  Receive Date: 20080509
  Receipt Date: 20080429
  Transmission Date: 20081010
  Serious: Yes (Disabling)
  Sender: FDA-Public Use
  Company Number: 2008011029

PATIENT
  Age: 52 Year
  Sex: Female
  Weight: 81.6475 kg

DRUGS (4)
  1. NEOSPORIN [Suspect]
     Indication: SURGERY
     Dosage: A SMALL AMOUNT 2-3 TIMES A DAY,TOPICAL
     Route: 061
     Dates: start: 20080212, end: 20080213
  2. PREDNISONE TAB [Concomitant]
  3. DIPHENHYDRAMINE HCL [Concomitant]
  4. CLINDAMYCIN HCL [Concomitant]

REACTIONS (3)
  - APPLICATION SITE BURN [None]
  - BURNING SENSATION [None]
  - LIP SWELLING [None]
